FAERS Safety Report 5871069-2 (Version None)
Quarter: 2008Q3

REPORT INFORMATION
  Report Type: 
  Country: None (occurrence: None)
  Receive Date: 20080904
  Receipt Date: 20080826
  Transmission Date: 20090109
  Serious: Yes (Other)
  Sender: FDA-Public Use
  Company Number: GB-PFIZER INC-2008071906

PATIENT
  Sex: Female

DRUGS (2)
  1. AMLODIPINE [Suspect]
     Route: 050
  2. BENDROFLUMETHIAZIDE [Suspect]
     Route: 050

REACTIONS (1)
  - ABORTION SPONTANEOUS [None]
